FAERS Safety Report 18498789 (Version 1)
Quarter: 2020Q4

REPORT INFORMATION
  Report Type: Spontaneous
  Country: JP (occurrence: JP)
  Receive Date: 20201113
  Receipt Date: 20201113
  Transmission Date: 20210114
  Serious: Yes (Hospitalization)
  Sender: FDA-Public Use
  Company Number: JP-SA-2020SA315525

PATIENT

DRUGS (3)
  1. LANTUS SOLOSTAR [Suspect]
     Active Substance: INSULIN GLARGINE
     Indication: PRODUCT USED FOR UNKNOWN INDICATION
     Dosage: 3600 UNITS
     Route: 058
  2. INSULIN LISPRO [Suspect]
     Active Substance: INSULIN LISPRO
     Indication: PRODUCT USED FOR UNKNOWN INDICATION
     Dosage: 2100 UNITS
     Route: 065
  3. GLUCOSE [Suspect]
     Active Substance: DEXTROSE
     Indication: HYPOGLYCAEMIA
     Dosage: 13.3 MG/KG/MIN
     Route: 065

REACTIONS (5)
  - Hepatomegaly [Unknown]
  - Liver disorder [Recovering/Resolving]
  - Hypoglycaemia [Recovering/Resolving]
  - Liver tenderness [Unknown]
  - Overdose [Unknown]
